FAERS Safety Report 4711962-7 (Version None)
Quarter: 2005Q3

REPORT INFORMATION
  Report Type: 
  Country: None (occurrence: None)
  Receive Date: 20050708
  Receipt Date: 20040830
  Transmission Date: 20060218
  Serious: Yes (Life-Threatening, Other)
  Sender: FDA-Public Use
  Company Number: US-2004-031057

PATIENT
  Age: 74 Year
  Sex: Female

DRUGS (2)
  1. ULTRAVIST 300 [Suspect]
     Indication: COMPUTERISED TOMOGRAM
     Dosage: 120 ML, 1 DOSE, INTRAVENOUS
     Route: 042
     Dates: start: 20040218, end: 20040218
  2. ULTRAVIST 300 [Suspect]
     Indication: COMPUTERISED TOMOGRAM ABDOMEN
     Dosage: 120 ML, 1 DOSE, INTRAVENOUS
     Route: 042
     Dates: start: 20040218, end: 20040218

REACTIONS (3)
  - DYSPNOEA [None]
  - FLUSHING [None]
  - THROAT TIGHTNESS [None]
